FAERS Safety Report 9265922 (Version 2)
Quarter: 2013Q2

REPORT INFORMATION
  Report Type: Spontaneous
  Country: US (occurrence: US)
  Receive Date: 20130501
  Receipt Date: 20130508
  Transmission Date: 20140414
  Serious: Yes (Hospitalization, Other)
  Sender: FDA-Public Use
  Company Number: CHPA2013US007372

PATIENT
  Age: 71 Year
  Sex: Male

DRUGS (4)
  1. VOLTAREN GEL [Suspect]
     Indication: ARTHRITIS
     Dosage: UNK, UP TO QID
     Route: 061
     Dates: start: 2010
  2. METHADONE [Concomitant]
     Dosage: UNK, UNK
  3. COUMADIN SODIUM [Concomitant]
     Dosage: UNK, UNK
  4. CORTISONE [Concomitant]
     Dosage: UNK, UNK

REACTIONS (3)
  - Oxygen saturation abnormal [Not Recovered/Not Resolved]
  - Pulmonary fibrosis [Not Recovered/Not Resolved]
  - Dry skin [Unknown]
